FAERS Safety Report 6706096-6 (Version None)
Quarter: 2010Q2

REPORT INFORMATION
  Report Type: 
  Country: None (occurrence: None)
  Receive Date: 20100503
  Receipt Date: 20100423
  Transmission Date: 20101027
  Serious: Yes (Hospitalization)
  Sender: FDA-Public Use
  Company Number: JP-PFIZER INC-2010053571

PATIENT
  Age: 94 Year
  Sex: Female

DRUGS (6)
  1. NORVASC [Suspect]
     Dosage: 2.5 MG/DAY
     Route: 048
  2. HYPEN [Suspect]
     Indication: PERIARTHRITIS
     Dosage: UNK
     Route: 048
     Dates: start: 20100408
  3. ONE-ALPHA [Suspect]
     Dosage: 0.5 UG, DAILY
     Route: 048
  4. TAKEPRON [Suspect]
     Dosage: 15 MG, DAILY
     Route: 048
  5. ESTRIEL [Suspect]
     Dosage: 0.5 MG, DAILY
     Route: 048
  6. DIOVANE [Suspect]
     Dosage: 40 MG, DAILY
     Route: 048

REACTIONS (1)
  - MELAENA [None]
